FAERS Safety Report 5766702-X (Version None)
Quarter: 2008Q2

REPORT INFORMATION
  Report Type: 
  Country: None (occurrence: None)
  Receive Date: 20080610
  Receipt Date: 20080610
  Transmission Date: 20081010
  Serious: Yes (Death, Life-Threatening, Hospitalization)
  Sender: FDA-Public Use
  Company Number: None

PATIENT
  Sex: Female
  Weight: 668.1484 kg

DRUGS (2)
  1. CETUXIMAB BMS [Suspect]
     Indication: CHEMOTHERAPY
     Dosage: 425MG WEEKLY IV DRIP
     Route: 041
     Dates: start: 20080501, end: 20080508
  2. DASATINIB BMS [Suspect]
     Indication: CHEMOTHERAPY
     Dosage: 150MG DAILY PO
     Route: 048
     Dates: start: 20080430, end: 20080508

REACTIONS (6)
  - DISEASE PROGRESSION [None]
  - HAEMORRHAGE [None]
  - HYPOTENSION [None]
  - PAIN [None]
  - QUADRIPLEGIA [None]
  - RESPIRATORY ARREST [None]
